FAERS Safety Report 19456979 (Version 1)
Quarter: 2021Q2

REPORT INFORMATION
  Report Type: Other
  Country: FR (occurrence: FR)
  Receive Date: 20210624
  Receipt Date: 20210624
  Transmission Date: 20210717
  Serious: Yes (Hospitalization)
  Sender: FDA-Public Use
  Company Number: FR-CADILA HEALTHCARE LIMITED-FR-ZYDUS-067114

PATIENT

DRUGS (1)
  1. ACICLOVIR TABLET [Suspect]
     Active Substance: ACYCLOVIR
     Indication: OPHTHALMIC HERPES ZOSTER
     Dosage: 1 GRAM, TID
     Route: 048
     Dates: start: 20210314, end: 20210314

REACTIONS (2)
  - Acute generalised exanthematous pustulosis [Recovered/Resolved]
  - Ophthalmic herpes zoster [Recovering/Resolving]

NARRATIVE: CASE EVENT DATE: 20210312
